FAERS Safety Report 5813118-3 (Version None)
Quarter: 2008Q3

REPORT INFORMATION
  Report Type: 
  Country: None (occurrence: None)
  Receive Date: 20080717
  Receipt Date: 20080201
  Transmission Date: 20090109
  Serious: No
  Sender: FDA-Public Use
  Company Number: A0706797A

PATIENT
  Age: 64 Year
  Sex: Male

DRUGS (1)
  1. NICORETTE [Suspect]
     Dates: start: 20071102

REACTIONS (1)
  - NICOTINE DEPENDENCE [None]
